FAERS Safety Report 4642833-2 (Version None)
Quarter: 2005Q2

REPORT INFORMATION
  Report Type: 
  Country: None (occurrence: None)
  Receive Date: 20050421
  Receipt Date: 20050412
  Transmission Date: 20051028
  Serious: Yes (Other)
  Sender: FDA-Public Use
  Company Number: 2004-11-1554

PATIENT
  Age: 57 Year
  Sex: Female

DRUGS (3)
  1. PEG-INTRON [Suspect]
     Indication: HEPATITIS C
     Dosage: 90 MCG SUBCUTANEOUS
     Route: 058
     Dates: start: 20040820, end: 20041105
  2. RIBAVIRIN [Suspect]
     Indication: HEPATITIS C
     Dosage: 800 MG QD ORAL
     Route: 048
     Dates: start: 20040820, end: 20041105
  3. ALCOHOL ORALS [Suspect]
     Dosage: ORAL
     Route: 048
     Dates: start: 20040901

REACTIONS (3)
  - ALCOHOLISM [None]
  - CONFUSIONAL STATE [None]
  - TREATMENT NONCOMPLIANCE [None]
